FAERS Safety Report 21543413 (Version 2)
Quarter: 2022Q4

REPORT INFORMATION
  Report Type: Spontaneous
  Country: TR (occurrence: TR)
  Receive Date: 20221102
  Receipt Date: 20221107
  Transmission Date: 20230112
  Serious: Yes (Other)
  Sender: FDA-Public Use
  Company Number: TR-PFIZER INC-PV202200090636

PATIENT
  Age: 28 Year
  Sex: Female

DRUGS (1)
  1. RITUXIMAB [Suspect]
     Active Substance: RITUXIMAB
     Indication: Myasthenia gravis
     Dosage: 1000 MG (IV INFUSION)
     Route: 042

REACTIONS (2)
  - Cutaneous vasculitis [Recovering/Resolving]
  - Skin lesion [Recovering/Resolving]
